FAERS Safety Report 19149114 (Version 1)
Quarter: 2021Q2

REPORT INFORMATION
  Report Type: Spontaneous
  Country: SE (occurrence: SE)
  Receive Date: 20210417
  Receipt Date: 20210417
  Transmission Date: 20210717
  Serious: Yes (Other)
  Sender: FDA-Public Use
  Company Number: SE-AUROBINDO-AUR-APL-2021-015654

PATIENT
  Age: 26 Year
  Sex: Female

DRUGS (6)
  1. NAPROXEN. [Concomitant]
     Active Substance: NAPROXEN
     Indication: PRODUCT USED FOR UNKNOWN INDICATION
     Dosage: 500 MILLIGRAM (VB)
     Route: 065
     Dates: start: 20200127
  2. OMECAT [Concomitant]
     Active Substance: OMEPRAZOLE
     Indication: PRODUCT USED FOR UNKNOWN INDICATION
     Dosage: UNK
     Route: 065
     Dates: start: 20200127
  3. EXLUTENA [Concomitant]
     Active Substance: LYNESTRENOL
     Indication: PRODUCT USED FOR UNKNOWN INDICATION
     Dosage: UNK
     Route: 065
     Dates: start: 20191107
  4. ZOMIG [Concomitant]
     Active Substance: ZOLMITRIPTAN
     Indication: PRODUCT USED FOR UNKNOWN INDICATION
     Dosage: UNK (VB)
     Route: 065
     Dates: start: 20190219
  5. SAROTEN [Concomitant]
     Active Substance: AMITRIPTYLINE
     Indication: PRODUCT USED FOR UNKNOWN INDICATION
     Dosage: UNK
     Route: 065
     Dates: start: 20191009
  6. METOPROLOL FILM?COATED TABLET [Suspect]
     Active Substance: METOPROLOL
     Indication: MIGRAINE PROPHYLAXIS
     Dosage: 100 MILLIGRAM (50 MG 1+1)
     Route: 048
     Dates: start: 202009

REACTIONS (1)
  - Intermenstrual bleeding [Recovered/Resolved]

NARRATIVE: CASE EVENT DATE: 202009
